FAERS Safety Report 7783551-1 (Version None)
Quarter: 2011Q3

REPORT INFORMATION
  Report Type: 
  Country: None (occurrence: None)
  Receive Date: 20110928
  Receipt Date: 20110920
  Transmission Date: 20111222
  Serious: Yes (Other)
  Sender: FDA-Public Use
  Company Number: DE-TEVA-301569GER

PATIENT
  Age: 22 Month
  Sex: Male
  Weight: 9.4 kg

DRUGS (1)
  1. IBUPROFEN [Suspect]
     Indication: BODY TEMPERATURE INCREASED
     Route: 048

REACTIONS (2)
  - BODY TEMPERATURE DECREASED [None]
  - HYPOTHERMIA [None]
